FAERS Safety Report 23510967 (Version 5)
Quarter: 2024Q2

REPORT INFORMATION
  Report Type: Spontaneous
  Country: US (occurrence: US)
  Receive Date: 20240212
  Receipt Date: 20240509
  Transmission Date: 20240716
  Serious: Yes (Other)
  Sender: FDA-Public Use
  Company Number: US-Blueprint Medicines Corporation-2280

PATIENT
  Age: 70 Year
  Sex: Female

DRUGS (6)
  1. AYVAKIT [Suspect]
     Active Substance: AVAPRITINIB
     Indication: Systemic mastocytosis
     Route: 065
     Dates: start: 20230510
  2. AYVAKIT [Suspect]
     Active Substance: AVAPRITINIB
     Indication: Advanced systemic mastocytosis
     Route: 065
     Dates: start: 20230510
  3. AYVAKIT [Suspect]
     Active Substance: AVAPRITINIB
     Route: 065
  4. AYVAKIT [Suspect]
     Active Substance: AVAPRITINIB
     Route: 048
     Dates: start: 20230510
  5. CROMOLYN [Suspect]
     Active Substance: CROMOLYN
     Indication: Product used for unknown indication
     Route: 065
  6. CROMOLYN [Suspect]
     Active Substance: CROMOLYN
     Route: 065

REACTIONS (12)
  - Chronic kidney disease [Unknown]
  - Renal disorder [Unknown]
  - Fatigue [Unknown]
  - Dizziness [Unknown]
  - Diarrhoea [Unknown]
  - Feeling abnormal [Unknown]
  - Memory impairment [Unknown]
  - Abdominal pain upper [Unknown]
  - Seasonal allergy [Not Recovered/Not Resolved]
  - Rhinorrhoea [Not Recovered/Not Resolved]
  - Blood glucose abnormal [Not Recovered/Not Resolved]
  - Flatulence [Not Recovered/Not Resolved]

NARRATIVE: CASE EVENT DATE: 20230510
